FAERS Safety Report 13745370 (Version 2)
Quarter: 2017Q3

REPORT INFORMATION
  Report Type: Spontaneous
  Country: PE (occurrence: PE)
  Receive Date: 20170712
  Receipt Date: 20170912
  Transmission Date: 20171127
  Serious: Yes (Other)
  Sender: FDA-Public Use
  Company Number: PE-ROCHE-1960510

PATIENT
  Age: 55 Year
  Sex: Male

DRUGS (2)
  1. XOLAIR [Suspect]
     Active Substance: OMALIZUMAB
     Route: 065
     Dates: start: 201705
  2. XOLAIR [Suspect]
     Active Substance: OMALIZUMAB
     Indication: HYPERSENSITIVITY
     Route: 065

REACTIONS (11)
  - Diabetes mellitus [Unknown]
  - Influenza [Unknown]
  - Bronchitis [Unknown]
  - Irritability [Unknown]
  - Pyrexia [Unknown]
  - Chest pain [Unknown]
  - Drug ineffective [Unknown]
  - Product use in unapproved indication [Unknown]
  - Accident [Unknown]
  - Fibula fracture [Unknown]
  - Lower respiratory tract congestion [Unknown]

NARRATIVE: CASE EVENT DATE: 20170628
